FAERS Safety Report 25766512 (Version 1)
Quarter: 2025Q3

REPORT INFORMATION
  Report Type: Spontaneous
  Country: US (occurrence: None)
  Receive Date: 20250903
  Receipt Date: 20250903
  Transmission Date: 20251021
  Serious: No
  Sender: FDA-CTU
  Company Number: None

PATIENT

DRUGS (1)
  1. METFORMIN [Suspect]
     Active Substance: METFORMIN HYDROCHLORIDE
     Dosage: FREQUENCY : TWICE A DAY;?

REACTIONS (5)
  - Treatment failure [None]
  - Glycosylated haemoglobin increased [None]
  - Product substitution issue [None]
  - Product formulation issue [None]
  - Drug intolerance [None]

NARRATIVE: CASE EVENT DATE: 20250903
